FAERS Safety Report 4590664-4 (Version None)
Quarter: 2005Q1

REPORT INFORMATION
  Report Type: 
  Country: None (occurrence: None)
  Receive Date: 20050224
  Receipt Date: 20031219
  Transmission Date: 20050727
  Serious: Yes (Hospitalization, Other)
  Sender: FDA-Public Use
  Company Number: US-ABBOTT-03P-163-0245221-00

PATIENT
  Sex: Female
  Weight: 72.64 kg

DRUGS (17)
  1. HUMIRA [Suspect]
     Indication: RHEUMATOID ARTHRITIS
     Route: 058
     Dates: start: 20030301, end: 20030701
  2. HUMIRA [Suspect]
     Route: 058
     Dates: start: 20030701, end: 20030801
  3. HUMIRA [Suspect]
     Route: 058
     Dates: start: 20030801, end: 20031020
  4. HUMIRA [Suspect]
     Route: 058
     Dates: start: 20031101, end: 20031201
  5. HUMIRA [Suspect]
     Route: 058
     Dates: start: 20040212, end: 20050101
  6. HUMIRA [Suspect]
     Route: 058
     Dates: start: 20050212
  7. CELECOXIB [Concomitant]
     Indication: RHEUMATOID ARTHRITIS
     Route: 048
  8. GABAPENTIN [Concomitant]
     Indication: BACK PAIN
     Route: 048
  9. GABAPENTIN [Concomitant]
     Indication: NERVE INJURY
     Route: 048
  10. AMITRIPTYLINE [Concomitant]
     Indication: INSOMNIA
     Route: 048
  11. AMITRIPTYLINE [Concomitant]
  12. RISEDRONATE SODIUM [Concomitant]
     Indication: OSTEOPOROSIS
     Route: 048
  13. LANSOPRAZOLE [Concomitant]
     Indication: GASTRIC DISORDER
     Route: 048
  14. MULTIVITAMIN [Concomitant]
     Indication: DRUG USE FOR UNKNOWN INDICATION
     Route: 048
  15. TOCOPHEROL CONCENTRATE CAP [Concomitant]
     Indication: DRUG USE FOR UNKNOWN INDICATION
     Route: 048
  16. CALCIUM GLUCONATE [Concomitant]
     Indication: DRUG USE FOR UNKNOWN INDICATION
     Route: 048
  17. ATORVASTATIN [Concomitant]
     Indication: BLOOD CHOLESTEROL
     Route: 048

REACTIONS (11)
  - BLINDNESS [None]
  - BRONCHITIS [None]
  - CATARACT [None]
  - FALL [None]
  - INJECTION SITE IRRITATION [None]
  - NASOPHARYNGITIS [None]
  - PNEUMONIA MYCOPLASMAL [None]
  - POSTOPERATIVE INFECTION [None]
  - PRODUCTIVE COUGH [None]
  - ROTATOR CUFF SYNDROME [None]
  - SINUSITIS [None]
